FAERS Safety Report 24200440 (Version 5)
Quarter: 2024Q3

REPORT INFORMATION
  Report Type: Report from Study
  Country: US (occurrence: US)
  Receive Date: 20240812
  Receipt Date: 20240820
  Transmission Date: 20241016
  Serious: Yes (Death, Life-Threatening)
  Sender: PFIZER
  Company Number: US-PFIZER INC-PV202400100834

PATIENT
  Age: 29 Year
  Sex: Female
  Weight: 86.3 kg

DRUGS (6)
  1. RAXTOZINAMERAN [Suspect]
     Active Substance: RAXTOZINAMERAN
     Indication: Immunisation
     Dosage: DOSE 1, SINGLE
     Route: 030
     Dates: start: 20240201, end: 20240201
  2. INFLUENZA VIRUS VACCINE QUADRIVALENT TYPE A+B [Suspect]
     Active Substance: INFLUENZA VIRUS VACCINE QUADRIVALENT TYPE A+B
     Indication: Immunisation
     Dosage: DOSE 1, SINGLE
     Route: 030
     Dates: start: 20240201, end: 20240201
  3. INVESTIGATIONAL PRODUCT [Suspect]
     Active Substance: INVESTIGATIONAL PRODUCT
     Indication: Immunisation
     Dosage: DOSE 1, SINGLE
     Route: 030
     Dates: start: 20240201, end: 20240201
  4. INVESTIGATIONAL PRODUCT [Suspect]
     Active Substance: INVESTIGATIONAL PRODUCT
     Indication: Immunisation
     Dosage: DOSE 1, SINGLE
     Route: 030
     Dates: start: 20240201, end: 20240201
  5. FENTANYL CITRATE [Suspect]
     Active Substance: FENTANYL CITRATE
  6. ALBUTEROL [Concomitant]
     Active Substance: ALBUTEROL
     Indication: Asthma exercise induced
     Dosage: 90 UG, AS NEEDED, INHALER
     Dates: start: 2006

REACTIONS (2)
  - Accidental overdose [Fatal]
  - Death [Fatal]

NARRATIVE: CASE EVENT DATE: 20240322
